FAERS Safety Report 9638643 (Version 1)
Quarter: 2013Q4

REPORT INFORMATION
  Report Type: Spontaneous
  Country: US (occurrence: US)
  Receive Date: 20131022
  Receipt Date: 20131022
  Transmission Date: 20140711
  Serious: No
  Sender: FDA-Public Use
  Company Number: US-BRISTOL-MYERS SQUIBB COMPANY-19405323

PATIENT
  Age: 66 Year
  Sex: Male
  Weight: 102.94 kg

DRUGS (8)
  1. ELIQUIS [Suspect]
     Indication: ATRIAL FIBRILLATION
     Route: 048
     Dates: start: 201307, end: 20130827
  2. XARELTO [Concomitant]
  3. SYNTHROID [Concomitant]
  4. GLIPIZIDE [Concomitant]
  5. VALSARTAN + HCTZ [Concomitant]
  6. DILTIAZEM HCL [Concomitant]
  7. LISINOPRIL [Concomitant]
  8. VITAMIN [Concomitant]

REACTIONS (3)
  - Local swelling [Not Recovered/Not Resolved]
  - Musculoskeletal stiffness [Not Recovered/Not Resolved]
  - Balance disorder [Not Recovered/Not Resolved]
